FAERS Safety Report 7298212-5 (Version None)
Quarter: 2011Q1

REPORT INFORMATION
  Report Type: 
  Country: None (occurrence: None)
  Receive Date: 20110214
  Receipt Date: 20110214
  Transmission Date: 20110831
  Serious: Yes (Other)
  Sender: FDA-Public Use
  Company Number: None

PATIENT
  Age: 18 Year
  Sex: Female
  Weight: 48.9885 kg

DRUGS (1)
  1. TERBINAFINE 25 MG [Suspect]
     Indication: ONYCHOMYCOSIS
     Dosage: 1 EVERY DAY. PO
     Route: 048
     Dates: start: 20100417, end: 20100419

REACTIONS (6)
  - ERYTHEMA [None]
  - DIARRHOEA [None]
  - RASH [None]
  - PRURITUS [None]
  - VOMITING [None]
  - VITILIGO [None]
